FAERS Safety Report 5302545-9 (Version None)
Quarter: 2007Q2

REPORT INFORMATION
  Report Type: 
  Country: None (occurrence: None)
  Receive Date: 20070413
  Receipt Date: 20070402
  Transmission Date: 20071010
  Serious: Yes (Hospitalization)
  Sender: FDA-Public Use
  Company Number: 232561K07USA

PATIENT
  Age: 48 Year
  Sex: Female

DRUGS (2)
  1. REBIF [Suspect]
     Indication: MULTIPLE SCLEROSIS
     Dosage: 44 MCG, 3 IN 3 WEEKS, SUBCUTANEOUS
     Route: 058
     Dates: start: 20030214, end: 20070101
  2. TYSABRI [Concomitant]

REACTIONS (2)
  - EPISTAXIS [None]
  - MUSCLE SPASMS [None]
